FAERS Safety Report 6960901-7 (Version None)
Quarter: 2010Q3

REPORT INFORMATION
  Report Type: 
  Country: None (occurrence: None)
  Receive Date: 20100901
  Receipt Date: 20100726
  Transmission Date: 20110219
  Serious: No
  Sender: FDA-Public Use
  Company Number: US-PFIZER INC-2010094138

PATIENT
  Sex: Female
  Weight: 106.58 kg

DRUGS (14)
  1. CLEOCIN [Suspect]
     Indication: LOCALISED INFECTION
     Dosage: UNK
     Route: 042
     Dates: start: 20100531, end: 20100711
  2. ZOLOFT [Concomitant]
     Dosage: 150 MG, DAILY AT BED TIME
     Route: 048
  3. XANAX [Concomitant]
     Dosage: 1 MG, DAILY AT BED TIME
     Route: 048
  4. CELEBREX [Concomitant]
     Indication: ARTHRITIS
     Dosage: UNK
     Route: 048
  5. GENTAMICIN [Concomitant]
     Dosage: UNK
  6. LABETALOL HYDROCHLORIDE [Concomitant]
     Indication: HYPERTENSION
     Dosage: 300 MG, 2X/DAY
  7. BUMETANIDE [Concomitant]
     Indication: HYPERTENSION
     Dosage: UNK
  8. BENICAR [Concomitant]
     Indication: HYPERTENSION
     Dosage: 20 MG, DAILY
     Route: 048
  9. CARDIZEM [Concomitant]
     Indication: HYPERTENSION
     Dosage: 240 MG, UNK
     Route: 048
  10. ABILIFY [Concomitant]
     Indication: DEPRESSION
     Dosage: 2.5 MG, DAILY
     Route: 048
  11. FOSAMAX [Concomitant]
     Dosage: 70 MG,1X/WEEK
     Route: 048
  12. FOLIC ACID [Concomitant]
     Dosage: UNK
  13. HYDROCODONE [Concomitant]
     Indication: PAIN
     Dosage: UNK
  14. PREPIDIL [Concomitant]
     Dosage: 300MG IN THE MORNING AND 100MG AT NOON, 2X/DAY

REACTIONS (4)
  - FATIGUE [None]
  - FUNGAL INFECTION [None]
  - PRURITUS [None]
  - RASH [None]
